FAERS Safety Report 23177900 (Version 1)
Quarter: 2023Q4

REPORT INFORMATION
  Report Type: Spontaneous
  Country: ES (occurrence: ES)
  Receive Date: 20231113
  Receipt Date: 20231113
  Transmission Date: 20240109
  Serious: Yes (Death)
  Sender: FDA-Public Use
  Company Number: None

PATIENT
  Sex: Male

DRUGS (1)
  1. CARBOPLATIN [Suspect]
     Active Substance: CARBOPLATIN
     Indication: Chemotherapy
     Route: 042
     Dates: start: 20230505, end: 20230611

REACTIONS (6)
  - Systemic toxicity [Fatal]
  - Deprescribing error [Fatal]
  - Anaemia [Fatal]
  - Febrile neutropenia [Fatal]
  - Acute kidney injury [Fatal]
  - Septic shock [Fatal]

NARRATIVE: CASE EVENT DATE: 20230601
